FAERS Safety Report 22198229 (Version 2)
Quarter: 2023Q2

REPORT INFORMATION
  Report Type: Spontaneous
  Country: JP (occurrence: JP)
  Receive Date: 20230411
  Receipt Date: 20230419
  Transmission Date: 20230721
  Serious: Yes (Other)
  Sender: FDA-Public Use
  Company Number: JP-PFIZER INC-202300146855

PATIENT
  Age: 6 Decade
  Sex: Female

DRUGS (4)
  1. AZITHROMYCIN DIHYDRATE [Suspect]
     Active Substance: AZITHROMYCIN DIHYDRATE
     Dosage: UNK
     Route: 048
  2. CLINDAMYCIN [Concomitant]
     Active Substance: CLINDAMYCIN
     Dosage: UNK
     Route: 048
  3. SODIUM CHLORIDE [Concomitant]
     Active Substance: SODIUM CHLORIDE
  4. PHENOBARBITAL [Concomitant]
     Active Substance: PHENOBARBITAL

REACTIONS (4)
  - Abdominal pain upper [Unknown]
  - Emotional distress [Unknown]
  - Fatigue [Unknown]
  - Movement disorder [Unknown]
